FAERS Safety Report 23922558 (Version 2)
Quarter: 2024Q2

REPORT INFORMATION
  Report Type: Spontaneous
  Country: CN (occurrence: CN)
  Receive Date: 20240531
  Receipt Date: 20240606
  Transmission Date: 20240716
  Serious: Yes (Other)
  Sender: FDA-Public Use
  Company Number: CN-SA-2024SA160412

PATIENT
  Age: 64 Year
  Sex: Male

DRUGS (6)
  1. OXALIPLATIN [Suspect]
     Active Substance: OXALIPLATIN
     Dosage: 212 MG, Q3W, ON DAY 1
     Dates: start: 20220723
  2. OXALIPLATIN [Suspect]
     Active Substance: OXALIPLATIN
     Dosage: UNK UNK, QCY
     Dates: start: 20220812, end: 20221217
  3. CAPECITABINE [Suspect]
     Active Substance: CAPECITABINE
     Dosage: 1.5 G, BID ON DAYS 1-14 (3-WK CHEMOTHERAPY CYCLE)
     Dates: start: 20220723
  4. LEUCOVORIN [Suspect]
     Active Substance: LEUCOVORIN\LEUCOVORIN CALCIUM
     Dosage: UNK UNK, QCY
     Dates: start: 20220812, end: 20221217
  5. FLUOROURACIL [Suspect]
     Active Substance: FLUOROURACIL
     Dosage: UNK UNK, QCY
     Dates: start: 20220812, end: 20221217
  6. CETUXIMAB [Suspect]
     Active Substance: CETUXIMAB
     Dosage: UNK UNK, QCY
     Dates: start: 20220812, end: 20221217

REACTIONS (4)
  - Palmar-plantar erythrodysaesthesia syndrome [Unknown]
  - Myelosuppression [Unknown]
  - COVID-19 pneumonia [Unknown]
  - Rash [Unknown]

NARRATIVE: CASE EVENT DATE: 20220101
